FAERS Safety Report 6923888-9 (Version None)
Quarter: 2010Q3

REPORT INFORMATION
  Report Type: 
  Country: None (occurrence: None)
  Receive Date: 20100813
  Receipt Date: 20100409
  Transmission Date: 20110219
  Serious: No
  Sender: FDA-Public Use
  Company Number: US-BRISTOL-MYERS SQUIBB COMPANY-15061732

PATIENT

DRUGS (1)
  1. REYATAZ [Suspect]
     Dosage: 300MG BOTTLE CONTAIN 150MG

REACTIONS (1)
  - MEDICATION ERROR [None]
